FAERS Safety Report 6359789-7 (Version None)
Quarter: 2009Q3

REPORT INFORMATION
  Report Type: 
  Country: None (occurrence: None)
  Receive Date: 20090917
  Receipt Date: 20090914
  Transmission Date: 20100115
  Serious: Yes (Hospitalization, Congenital Anomaly)
  Sender: FDA-Public Use
  Company Number: A0681483A

PATIENT
  Sex: Male

DRUGS (2)
  1. PAXIL [Suspect]
     Indication: DEPRESSION
     Dosage: 30MG PER DAY
     Route: 048
     Dates: start: 19971208, end: 20030501
  2. VITAMIN TAB [Concomitant]

REACTIONS (7)
  - ATRIAL SEPTAL DEFECT [None]
  - CONGENITAL ANOMALY [None]
  - DRUG EXPOSURE DURING PREGNANCY [None]
  - OESOPHAGEAL ATRESIA [None]
  - TRACHEO-OESOPHAGEAL FISTULA [None]
  - VACTERL SYNDROME [None]
  - VENTRICULAR SEPTAL DEFECT [None]
